FAERS Safety Report 18331176 (Version 2)
Quarter: 2020Q4

REPORT INFORMATION
  Report Type: Spontaneous
  Country: US (occurrence: US)
  Receive Date: 20200930
  Receipt Date: 20201001
  Transmission Date: 20210113
  Serious: Yes (Other)
  Sender: FDA-Public Use
  Company Number: US-PFIZER INC-2020377806

PATIENT
  Age: 63 Year

DRUGS (1)
  1. CELEBREX [Suspect]
     Active Substance: CELECOXIB
     Dosage: UNK

REACTIONS (6)
  - Pain [Unknown]
  - Arthritis [Unknown]
  - Panic reaction [Unknown]
  - Blindness [Unknown]
  - Hyperhidrosis [Unknown]
  - Hypertension [Unknown]
